FAERS Safety Report 4637500-5 (Version None)
Quarter: 2005Q2

REPORT INFORMATION
  Report Type: 
  Country: None (occurrence: None)
  Receive Date: 20050328
  Receipt Date: 20041206
  Transmission Date: 20051028
  Serious: No
  Sender: FDA-Public Use
  Company Number: USA030946857

PATIENT
  Age: 13 Year
  Sex: Male
  Weight: 34 kg

DRUGS (4)
  1. STRATTERA [Suspect]
     Indication: ATTENTION DEFICIT/HYPERACTIVITY DISORDER
     Dosage: 35 MG IN THE MORNING
     Dates: start: 20030601
  2. VITAMIN [Concomitant]
  3. CHLORHEXIDINE-SODIUM [Concomitant]
  4. .. [Suspect]

REACTIONS (4)
  - CHEST PAIN [None]
  - DRUG EFFECT DECREASED [None]
  - DRUG INTERACTION [None]
  - TACHYCARDIA [None]
